FAERS Safety Report 9684827 (Version 4)
Quarter: 2015Q2

REPORT INFORMATION
  Report Type: Report from Study
  Country: JP (occurrence: JP)
  Receive Date: 20131112
  Receipt Date: 20150611
  Transmission Date: 20150821
  Serious: Yes (Other)
  Sender: FDA-Public Use
  Company Number: PHHY2013JP128623

PATIENT
  Age: 56 Year
  Sex: Female

DRUGS (15)
  1. HIRNAMIN [Concomitant]
     Active Substance: PHENOTHIAZINE
     Dosage: 10 MG, QD
     Route: 048
     Dates: start: 20131206, end: 20140131
  2. ETIZOLAM [Concomitant]
     Active Substance: ETIZOLAM
     Indication: SCHIZOPHRENIA, DISORGANISED TYPE
     Dosage: 1 MG, QD
     Route: 065
     Dates: start: 20080212
  3. NELBON [Concomitant]
     Active Substance: NITRAZEPAM
     Indication: SCHIZOPHRENIA, DISORGANISED TYPE
     Dosage: 15 MG, QD
     Route: 048
     Dates: start: 20130412
  4. CLOZARIL [Suspect]
     Active Substance: CLOZAPINE
     Dosage: 50 MG, QD
     Route: 048
     Dates: start: 20131103, end: 20131106
  5. HIRNAMIN [Concomitant]
     Active Substance: PHENOTHIAZINE
     Indication: SCHIZOPHRENIA, DISORGANISED TYPE
     Dosage: 25 MG, QD
     Route: 048
     Dates: start: 20131031, end: 20131107
  6. SERENACE [Concomitant]
     Active Substance: HALOPERIDOL
     Indication: SCHIZOPHRENIA, DISORGANISED TYPE
     Dosage: 6 MG, QD
     Route: 048
     Dates: start: 20131031, end: 20140123
  7. LEUCON [Concomitant]
     Indication: PROPHYLAXIS
     Dosage: 10 MG, QD
     Route: 048
     Dates: start: 20131031, end: 20131104
  8. HIRNAMIN [Concomitant]
     Active Substance: PHENOTHIAZINE
     Dosage: 15 MG, QD
     Route: 048
     Dates: start: 20131108, end: 20131205
  9. AMLODIPINE [Concomitant]
     Active Substance: AMLODIPINE BESYLATE
     Indication: HYPERTENSION
     Dosage: 2.5 MG, UNK
     Route: 048
     Dates: start: 20130802
  10. LEUCON [Concomitant]
     Dosage: 30 MG, QD
     Route: 048
     Dates: start: 20131104, end: 20140131
  11. SENNOSIDE [Concomitant]
     Active Substance: SENNOSIDES
     Indication: SCHIZOPHRENIA, DISORGANISED TYPE
     Dosage: 36 MG, QD
     Route: 048
  12. AKIRIDEN [Concomitant]
     Active Substance: BIPERIDEN
     Indication: SCHIZOPHRENIA, DISORGANISED TYPE
     Dosage: 3 MG, QD
     Route: 048
     Dates: end: 20131127
  13. AKIRIDEN [Concomitant]
     Active Substance: BIPERIDEN
     Dosage: 2 MG, QD
     Route: 048
     Dates: start: 20131128
  14. CLOZARIL [Suspect]
     Active Substance: CLOZAPINE
     Dosage: 25 MG, QD
     Route: 048
     Dates: start: 20131101, end: 20131102
  15. CLOZARIL [Suspect]
     Active Substance: CLOZAPINE
     Indication: SCHIZOPHRENIA, DISORGANISED TYPE
     Dosage: 12.5 MG, QD
     Route: 048
     Dates: start: 20131031, end: 20131031

REACTIONS (6)
  - Cholecystitis [Recovered/Resolved]
  - Pyelonephritis [Unknown]
  - White blood cell count increased [Recovered/Resolved]
  - Liver disorder [Recovering/Resolving]
  - Pyrexia [Recovering/Resolving]
  - Haemoglobin decreased [Not Recovered/Not Resolved]

NARRATIVE: CASE EVENT DATE: 20131103
